FAERS Safety Report 21774073 (Version 1)
Quarter: 2022Q4

REPORT INFORMATION
  Report Type: Spontaneous
  Country: US (occurrence: None)
  Receive Date: 20221223
  Receipt Date: 20221223
  Transmission Date: 20230112
  Serious: Yes (Life-Threatening)
  Sender: FDA-Public Use
  Company Number: 2022A413078

PATIENT
  Sex: Female
  Weight: 81.6 kg

DRUGS (1)
  1. FARXIGA [Suspect]
     Active Substance: DAPAGLIFLOZIN PROPANEDIOL
     Indication: Diabetes mellitus
     Dosage: 10 ONCE/SINGLE ADMINISTRATION
     Route: 048
     Dates: start: 20221214, end: 20221220

REACTIONS (9)
  - Oropharyngeal pain [Unknown]
  - Abdominal pain upper [Unknown]
  - Fungal infection [Unknown]
  - Headache [Unknown]
  - Pain [Unknown]
  - Dizziness [Unknown]
  - Blood glucose abnormal [Unknown]
  - Rhinorrhoea [Unknown]
  - Nausea [Unknown]
